FAERS Safety Report 5092050-X (Version None)
Quarter: 2006Q3

REPORT INFORMATION
  Report Type: 
  Country: None (occurrence: None)
  Receive Date: 20060825
  Receipt Date: 20060809
  Transmission Date: 20061208
  Serious: Yes (Hospitalization)
  Sender: FDA-Public Use
  Company Number: 2006US001820

PATIENT
  Age: 62 Year
  Sex: Male

DRUGS (1)
  1. AMEVIVE [Suspect]
     Indication: PSORIASIS
     Dosage: 15 MG, WEEKLY, INTRAMUSCULAR
     Route: 030
     Dates: start: 20060317, end: 20060519

REACTIONS (5)
  - ABDOMINAL PAIN UPPER [None]
  - BONE MARROW FAILURE [None]
  - JAUNDICE [None]
  - RENAL DISORDER [None]
  - THROMBOCYTOPENIA [None]
